FAERS Safety Report 6569507-5 (Version None)
Quarter: 2010Q1

REPORT INFORMATION
  Report Type: 
  Country: None (occurrence: None)
  Receive Date: 20100204
  Receipt Date: 20100126
  Transmission Date: 20100710
  Serious: Yes (Other)
  Sender: FDA-Public Use
  Company Number: US-ELI_LILLY_AND_COMPANY-US201002000567

PATIENT
  Sex: Female

DRUGS (1)
  1. FORTEO [Suspect]
     Indication: OSTEOPOROSIS
     Dosage: 20 UG, DAILY (1/D)
     Route: 065
     Dates: start: 20090101, end: 20091113

REACTIONS (7)
  - ABDOMINAL PAIN UPPER [None]
  - ARTHROPATHY [None]
  - DYSPHAGIA [None]
  - MUSCULOSKELETAL PAIN [None]
  - NERVE INJURY [None]
  - PAIN IN EXTREMITY [None]
  - WEIGHT DECREASED [None]
